FAERS Safety Report 14607402 (Version 1)
Quarter: 2018Q1

REPORT INFORMATION
  Report Type: Report from Study
  Country: None (occurrence: US)
  Receive Date: 20180307
  Receipt Date: 20180307
  Transmission Date: 20180509
  Serious: Yes (Hospitalization, Other)
  Sender: FDA-Public Use
  Company Number: US-ABBVIE-18K-163-2272786-00

PATIENT
  Age: 63 Year
  Sex: Male
  Weight: 93.52 kg

DRUGS (3)
  1. HUMIRA [Suspect]
     Active Substance: ADALIMUMAB
     Indication: PSORIASIS
     Route: 058
  2. BYSTOLIC [Concomitant]
     Active Substance: NEBIVOLOL HYDROCHLORIDE
     Indication: HYPERTENSION
  3. LOSARTAN. [Concomitant]
     Active Substance: LOSARTAN
     Indication: HYPERTENSION

REACTIONS (9)
  - Pneumonia [Recovering/Resolving]
  - Musculoskeletal chest pain [Recovering/Resolving]
  - Enostosis [Not Recovered/Not Resolved]
  - Aortic arteriosclerosis [Not Recovered/Not Resolved]
  - Weight decreased [Not Recovered/Not Resolved]
  - Pleurisy [Recovering/Resolving]
  - Device issue [Unknown]
  - Hypertension [Recovered/Resolved]
  - Vascular calcification [Not Recovered/Not Resolved]

NARRATIVE: CASE EVENT DATE: 2017
